FAERS Safety Report 15601617 (Version 2)
Quarter: 2018Q4

REPORT INFORMATION
  Report Type: Spontaneous
  Country: ES (occurrence: ES)
  Receive Date: 20181109
  Receipt Date: 20181120
  Transmission Date: 20190205
  Serious: Yes (Hospitalization)
  Sender: FDA-Public Use
  Company Number: ES-LANNETT COMPANY, INC.-ES-2018LAN001284

PATIENT
  Age: 81 Year
  Sex: Female

DRUGS (5)
  1. MORPHINE SULFATE. [Suspect]
     Active Substance: MORPHINE SULFATE
     Indication: BACK PAIN
     Dosage: 20MG OR 30MG; EVERY 4 TO 6 HOURS; RESCUE DOSE
     Route: 065
  2. FENTANYL. [Suspect]
     Active Substance: FENTANYL
     Indication: BACK PAIN
     Dosage: 1200 G, 4 TO 5 TIMES; QD (ROUTE: TRANSMUCOSAL)
  3. FENTANYL. [Suspect]
     Active Substance: FENTANYL
     Dosage: 760 MG, QD (ROUTE: TRANSMUCOSAL)
     Route: 065
  4. OXYCODONE HYDROCHLORIDE. [Suspect]
     Active Substance: OXYCODONE HYDROCHLORIDE
     Indication: BACK PAIN
     Dosage: 120 MG, EVERY 12 HOURS
     Route: 065
  5. BUPRENORPHINE AND NALOXONE [Suspect]
     Active Substance: BUPRENORPHINE\NALOXONE
     Indication: BACK PAIN
     Dosage: 140 ?G, EVERY 72 HOURS, PATCH
     Route: 065

REACTIONS (1)
  - Hyperaesthesia [Recovering/Resolving]
